FAERS Safety Report 4753476-4 (Version None)
Quarter: 2005Q3

REPORT INFORMATION
  Report Type: 
  Country: None (occurrence: None)
  Receive Date: 20050826
  Receipt Date: 20050329
  Transmission Date: 20060218
  Serious: Yes (Death, Hospitalization)
  Sender: FDA-Public Use
  Company Number: 2005UW04971

PATIENT
  Age: 21392 Day
  Sex: Male
  Weight: 81.4 kg

DRUGS (14)
  1. IRESSA [Suspect]
     Indication: ADENOCARCINOMA
     Route: 048
     Dates: start: 20050208, end: 20050309
  2. TAXOL [Suspect]
     Route: 042
     Dates: start: 20041001, end: 20050118
  3. CARBOPLATIN [Suspect]
     Route: 042
     Dates: start: 20041001, end: 20050118
  4. ETOPOSIDE [Suspect]
     Dosage: 50 MG/100 MG
     Route: 048
     Dates: start: 20041001, end: 20050126
  5. BROAD SPECTRUM ANTIBIOTIC [Suspect]
     Indication: LUNG INFILTRATION
  6. EMPIRIC STEROIDS [Suspect]
     Indication: DYSPNOEA
  7. EMPIRIC STEROIDS [Suspect]
     Indication: INTERSTITIAL LUNG DISEASE
  8. TOPROL-XL [Concomitant]
     Indication: CORONARY ARTERY DISEASE
     Route: 048
     Dates: start: 20010801
  9. COMBIVENT [Concomitant]
     Indication: DYSPNOEA
     Dates: start: 20050301
  10. OXYCONTIN [Concomitant]
     Indication: PAIN
     Dates: start: 20041101
  11. LORTAB [Concomitant]
     Indication: PAIN
     Dates: start: 20041001
  12. LOVENOX [Concomitant]
     Indication: DEEP VEIN THROMBOSIS
     Dates: start: 20050301
  13. COUMADIN [Concomitant]
     Indication: DEEP VEIN THROMBOSIS
     Dates: start: 20040901
  14. VITAMIN B6 [Concomitant]
     Indication: NEUROPATHY
     Dates: start: 20041001

REACTIONS (7)
  - CARDIO-RESPIRATORY ARREST [None]
  - DYSPNOEA [None]
  - HAEMOPTYSIS [None]
  - HEART RATE INCREASED [None]
  - HYPOXIA [None]
  - LUNG INFILTRATION [None]
  - RESPIRATORY FAILURE [None]
